FAERS Safety Report 26069584 (Version 1)
Quarter: 2025Q4

REPORT INFORMATION
  Report Type: Spontaneous
  Country: US (occurrence: None)
  Receive Date: 20251120
  Receipt Date: 20251120
  Transmission Date: 20260118
  Serious: No
  Sender: UCB
  Company Number: US-UCBSA-2024046358

PATIENT
  Age: 65 Year

DRUGS (5)
  1. LACOSAMIDE [Suspect]
     Active Substance: LACOSAMIDE
     Indication: Toxicity to various agents
     Dosage: 100 MILLIGRAM
  2. LACOSAMIDE [Suspect]
     Active Substance: LACOSAMIDE
     Indication: Off label use
     Dosage: 150 MILLIGRAM, 2X/DAY (BID)
  3. LORAZEPAM [Concomitant]
     Active Substance: LORAZEPAM
     Indication: Toxicity to various agents
     Dosage: UNK
  4. CEFEPIME [Concomitant]
     Active Substance: CEFEPIME HYDROCHLORIDE
     Indication: Gangrene
     Dosage: 2 GRAM INTRAVENOUS PIGGYBACK (IVPB).
  5. CEFEPIME [Concomitant]
     Active Substance: CEFEPIME HYDROCHLORIDE
     Dosage: DIALYZED

REACTIONS (1)
  - No adverse event [Unknown]
